FAERS Safety Report 4929076-X (Version None)
Quarter: 2006Q1

REPORT INFORMATION
  Report Type: 
  Country: None (occurrence: None)
  Receive Date: 20060301
  Receipt Date: 20050516
  Transmission Date: 20060701
  Serious: Yes (Hospitalization)
  Sender: FDA-Public Use
  Company Number: US-MERCK-0505USA01962

PATIENT
  Age: 42 Year
  Sex: Male
  Weight: 111 kg

DRUGS (1)
  1. VIOXX [Suspect]
     Indication: NECK PAIN
     Route: 048
     Dates: start: 20040621

REACTIONS (4)
  - ANOXIC ENCEPHALOPATHY [None]
  - CARDIAC ARREST [None]
  - CARDIAC DISORDER [None]
  - DEPRESSION [None]
